FAERS Safety Report 13022717 (Version 2)
Quarter: 2017Q1

REPORT INFORMATION
  Report Type: Spontaneous
  Country: JP (occurrence: JP)
  Receive Date: 20161213
  Receipt Date: 20170117
  Transmission Date: 20170428
  Serious: Yes (Life-Threatening, Hospitalization, Other)
  Sender: FDA-Public Use
  Company Number: JP-PFIZER INC-2016575267

PATIENT
  Age: 4 Week
  Sex: Male
  Weight: 3.04 kg

DRUGS (3)
  1. PRECEDEX [Suspect]
     Active Substance: DEXMEDETOMIDINE HYDROCHLORIDE
     Dosage: 25.3 UG, 1X/DAY
     Route: 042
     Dates: start: 20161201, end: 20161201
  2. KETALAR [Suspect]
     Active Substance: KETAMINE HYDROCHLORIDE
     Dosage: 3 MG, 1X/DAY
     Route: 042
     Dates: start: 20161201, end: 20161201
  3. MIDAZOLAM [Suspect]
     Active Substance: MIDAZOLAM HYDROCHLORIDE
     Dosage: 0.3 MG, 1X/DAY
     Route: 042
     Dates: start: 20161201, end: 20161201

REACTIONS (6)
  - Hypothermia [Recovered/Resolved]
  - Gamma-glutamyltransferase increased [None]
  - Heart rate increased [None]
  - Aspartate aminotransferase increased [None]
  - Blood bilirubin increased [None]
  - Blood pressure diastolic decreased [None]

NARRATIVE: CASE EVENT DATE: 20161201
